FAERS Safety Report 7505496-4 (Version None)
Quarter: 2011Q2

REPORT INFORMATION
  Report Type: 
  Country: None (occurrence: None)
  Receive Date: 20110526
  Receipt Date: 20110519
  Transmission Date: 20111010
  Serious: Yes (Hospitalization)
  Sender: FDA-Public Use
  Company Number: FR-BRISTOL-MYERS SQUIBB COMPANY-15768492

PATIENT
  Age: 50 Year
  Sex: Male

DRUGS (3)
  1. REYATAZ [Suspect]
     Indication: HIV INFECTION
     Route: 048
     Dates: start: 20090415, end: 20101216
  2. NORVIR [Suspect]
     Indication: HIV INFECTION
     Route: 048
     Dates: start: 20090415, end: 20101216
  3. ABACAVIR SULFATE AND LAMIVUDINE [Concomitant]
     Dosage: 1DF:600MG/300MG
     Route: 048
     Dates: start: 20070911

REACTIONS (1)
  - RENAL COLIC [None]
